FAERS Safety Report 9131728 (Version 1)
Quarter: 2013Q1

REPORT INFORMATION
  Report Type: Report from Study
  Country: US (occurrence: US)
  Receive Date: 20130301
  Receipt Date: 20130301
  Transmission Date: 20140127
  Serious: No
  Sender: FDA-Public Use
  Company Number: US-MYLANLABS-2012S1012592

PATIENT
  Age: 43 Year
  Sex: Male
  Weight: 61.24 kg

DRUGS (2)
  1. AMNESTEEM CAPSULES [Suspect]
     Indication: HIDRADENITIS
     Route: 048
     Dates: start: 20120409, end: 20120606
  2. AMNESTEEM CAPSULES [Suspect]
     Indication: HIDRADENITIS
     Route: 048
     Dates: start: 20120409, end: 20120605

REACTIONS (5)
  - Condition aggravated [Recovered/Resolved]
  - Headache [Recovered/Resolved]
  - Migraine [Recovered/Resolved]
  - Vision blurred [Recovered/Resolved]
  - Heart rate increased [Recovered/Resolved]
